FAERS Safety Report 21105503 (Version 1)
Quarter: 2022Q3

REPORT INFORMATION
  Report Type: Spontaneous
  Country: US (occurrence: US)
  Receive Date: 20220720
  Receipt Date: 20220720
  Transmission Date: 20221027
  Serious: Yes (Other)
  Sender: FDA-Public Use
  Company Number: US-FreseniusKabi-FK202209908

PATIENT
  Sex: Female
  Weight: 500 kg

DRUGS (6)
  1. INTRALIPID [Suspect]
     Active Substance: EGG PHOSPHOLIPIDS\GLYCERIN\SOYBEAN OIL
     Indication: Product used for unknown indication
     Dosage: 1  G/KG ON DOL 1 ALONG WITH A D12.5 PERCENT INFUSION WHICH INFUSED DURING ALL 3 CALCIUM GLUCONATE BO
  2. SMOFLIPID [Suspect]
     Active Substance: FISH OIL\MEDIUM-CHAIN TRIGLYCERIDES\OLIVE OIL\SOYBEAN OIL
     Indication: Product used for unknown indication
     Dosage: 2 G/KG ON DOL 2, WHICH INFUSED WITH A TPN CONTAINING 2 MEQ/KG CALCIUM WITH 1 MMOL/KG PHOSPHORUS WITH
  3. CALCIUM GLUCONATE [Suspect]
     Active Substance: CALCIUM GLUCONATE
     Indication: Hypocalcaemia
     Dosage: 3 BOLUSES OF CALCIUM GLUCONATE 100 MG/KG, EACH ABOUT 8 HOURS FROM THE LAST ONE PRIOR.
  4. PRECEDEX [Suspect]
     Active Substance: DEXMEDETOMIDINE HYDROCHLORIDE
     Indication: Product used for unknown indication
  5. PREMASOL - SULFITE-FREE (AMINO ACID) [Suspect]
     Active Substance: ALANINE\ARGININE\ASPARTIC ACID\CYSTEINE HYDROCHLORIDE\GLUTAMIC ACID\GLYCINE\HISTIDINE\ISOLEUCINE\LEU
     Indication: Product used for unknown indication
  6. DEXTROSE [Suspect]
     Active Substance: DEXTROSE
     Indication: Product used for unknown indication
     Dosage: GIR OF 4 MG/KG/MIN

REACTIONS (2)
  - Hypoglycaemia [Unknown]
  - Off label use [Unknown]
